FAERS Safety Report 9136567 (Version 1)
Quarter: 2013Q1

REPORT INFORMATION
  Report Type: Spontaneous
  Country: US (occurrence: US)
  Receive Date: 20130304
  Receipt Date: 20130304
  Transmission Date: 20140127
  Serious: No
  Sender: FDA-Public Use
  Company Number: US-ABBOTT-12P-163-0950369-00

PATIENT
  Sex: Male
  Weight: 136.2 kg

DRUGS (5)
  1. ANDROGEL 1% [Suspect]
     Indication: BLOOD TESTOSTERONE DECREASED
  2. DIOVAN [Concomitant]
     Indication: HYPERTENSION
  3. TOPROL XL [Concomitant]
     Indication: HYPERTENSION
  4. DECLINED LONG LIST OTC VIT [Concomitant]
     Indication: PRODUCT USED FOR UNKNOWN INDICATION
  5. WATER PILL [Concomitant]
     Indication: PRODUCT USED FOR UNKNOWN INDICATION

REACTIONS (4)
  - Fatigue [Unknown]
  - Blood testosterone increased [Unknown]
  - Lethargy [Unknown]
  - Incorrect dose administered [Unknown]
